FAERS Safety Report 11019776 (Version 2)
Quarter: 2015Q2

REPORT INFORMATION
  Report Type: Spontaneous
  Country: US (occurrence: US)
  Receive Date: 20150412
  Receipt Date: 20150525
  Transmission Date: 20150821
  Serious: Yes (Other)
  Sender: FDA-Public Use
  Company Number: US-JNJFOC-20121211229

PATIENT
  Age: 40 Year
  Sex: Male

DRUGS (3)
  1. KENALOG [Suspect]
     Active Substance: TRIAMCINOLONE ACETONIDE
     Indication: DERMATITIS PAPILLARIS CAPILLITII
     Route: 026
  2. LEVAQUIN [Suspect]
     Active Substance: LEVOFLOXACIN
     Indication: DERMATITIS PAPILLARIS CAPILLITII
     Route: 048
     Dates: start: 2006
  3. LEVAQUIN [Suspect]
     Active Substance: LEVOFLOXACIN
     Indication: PSEUDOFOLLICULITIS BARBAE
     Route: 048
     Dates: start: 2006

REACTIONS (5)
  - Tendon rupture [Unknown]
  - Tendon rupture [Not Recovered/Not Resolved]
  - Tendon rupture [Not Recovered/Not Resolved]
  - Tendon rupture [Not Recovered/Not Resolved]
  - Tendon rupture [Unknown]

NARRATIVE: CASE EVENT DATE: 20061202
